FAERS Safety Report 9955671 (Version 1)
Quarter: 2014Q1

REPORT INFORMATION
  Report Type: Report from Study
  Country: US (occurrence: US)
  Receive Date: 20140304
  Receipt Date: 20140304
  Transmission Date: 20141002
  Serious: No
  Sender: FDA-Public Use
  Company Number: US-ABBVIE-13P-163-1087091-00

PATIENT
  Age: 70 Year
  Sex: Male

DRUGS (11)
  1. HUMIRA [Suspect]
     Indication: PSORIASIS
     Dates: start: 20130413
  2. BABY ASPIRIN [Concomitant]
     Indication: CARDIOVASCULAR EVENT PROPHYLAXIS
     Dosage: ONE A DAY
  3. LISINOPRIL [Concomitant]
     Indication: PROPHYLAXIS
     Dosage: 20 MG 1 A DAY
  4. SALSALATE [Concomitant]
     Indication: GOUT
     Dosage: 500 MG 2 A DAY
  5. MULTI VITAMIN [Concomitant]
     Indication: PRODUCT USED FOR UNKNOWN INDICATION
  6. VITAMIN E [Concomitant]
     Indication: PRODUCT USED FOR UNKNOWN INDICATION
  7. CALCIUM [Concomitant]
     Indication: PRODUCT USED FOR UNKNOWN INDICATION
  8. GENSING [Concomitant]
     Indication: PRODUCT USED FOR UNKNOWN INDICATION
  9. VITAMIN C [Concomitant]
     Indication: PRODUCT USED FOR UNKNOWN INDICATION
  10. B-50 [Concomitant]
     Indication: VITAMIN SUPPLEMENTATION
     Dosage: 1 EACH A DAY
  11. PROSTATE HEALTH COMPLEX OVER THE COUNTER [Concomitant]
     Indication: MICTURITION DISORDER
     Dosage: 1 EACH NIGHT

REACTIONS (2)
  - Psoriasis [Not Recovered/Not Resolved]
  - Local swelling [Not Recovered/Not Resolved]
